FAERS Safety Report 10720732 (Version 1)
Quarter: 2015Q1

REPORT INFORMATION
  Report Type: Spontaneous
  Country: US (occurrence: US)
  Receive Date: 20150119
  Receipt Date: 20150119
  Transmission Date: 20150721
  Serious: No
  Sender: FDA-Public Use
  Company Number: US-UNITED THERAPEUTICS-UNT-2014-005967

PATIENT
  Sex: Female
  Weight: 80.27 kg

DRUGS (2)
  1. REMODULIN [Suspect]
     Active Substance: TREPROSTINIL
     Indication: SYSTEMIC SCLEROSIS
     Dosage: 0.041 ?G/KG/MIN, CONTINUING
     Route: 058
     Dates: start: 20131217
  2. LETAIRIS [Concomitant]
     Active Substance: AMBRISENTAN
     Indication: PRODUCT USED FOR UNKNOWN INDICATION

REACTIONS (4)
  - Pain in extremity [Unknown]
  - Oedema peripheral [Unknown]
  - Infusion site pain [Unknown]
  - Arthralgia [Unknown]
